FAERS Safety Report 20769731 (Version 1)
Quarter: 2022Q2

REPORT INFORMATION
  Report Type: Spontaneous
  Country: US (occurrence: None)
  Receive Date: 20220429
  Receipt Date: 20220429
  Transmission Date: 20220720
  Serious: Yes (Life-Threatening, Hospitalization, Other)
  Sender: FDA-Public Use
  Company Number: None

PATIENT
  Age: 10 Year
  Sex: Male
  Weight: 56 kg

DRUGS (3)
  1. METHYLPHENIDATE [Suspect]
     Active Substance: METHYLPHENIDATE
     Indication: Attention deficit hyperactivity disorder
     Dosage: FREQUENCY : DAILY;?
     Route: 048
     Dates: start: 20220419, end: 20220428
  2. DEXMETHYLPHENIDATE [Concomitant]
     Active Substance: DEXMETHYLPHENIDATE
  3. CLONIDINE [Concomitant]
     Active Substance: CLONIDINE

REACTIONS (7)
  - Rash [None]
  - Erythema [None]
  - Blister [None]
  - Vision blurred [None]
  - Dysphagia [None]
  - Oral pain [None]
  - Eye pain [None]

NARRATIVE: CASE EVENT DATE: 20220428
